FAERS Safety Report 4812737-0 (Version None)
Quarter: 2005Q4

REPORT INFORMATION
  Report Type: 
  Country: None (occurrence: None)
  Receive Date: 20051028
  Receipt Date: 20041111
  Transmission Date: 20060501
  Serious: No
  Sender: FDA-Public Use
  Company Number: US-GLAXOSMITHKLINE-A0533616A

PATIENT
  Age: 52 Year
  Sex: Female

DRUGS (4)
  1. ADVAIR DISKUS 100/50 [Suspect]
     Indication: ASTHMA
     Route: 055
     Dates: start: 20031101
  2. TOPROL-XL [Concomitant]
  3. ALTACE [Concomitant]
  4. ISO-BID [Concomitant]

REACTIONS (3)
  - BRONCHITIS [None]
  - COUGH [None]
  - DYSPNOEA [None]
